FAERS Safety Report 9425503 (Version 2)
Quarter: 2013Q3

REPORT INFORMATION
  Report Type: Report from Study
  Country: US (occurrence: US)
  Receive Date: 20130729
  Receipt Date: 20130826
  Transmission Date: 20140515
  Serious: Yes (Hospitalization)
  Sender: FDA-Public Use
  Company Number: US-US-EMD SERONO, INC.-7225794

PATIENT
  Age: 69 Year
  Sex: Female

DRUGS (4)
  1. REBIF [Suspect]
     Indication: MULTIPLE SCLEROSIS
     Route: 058
     Dates: start: 2003
  2. REBIF [Suspect]
     Route: 058
     Dates: start: 20070412, end: 20130605
  3. REBIF [Suspect]
     Route: 058
     Dates: start: 20130708
  4. REBIF [Suspect]
     Route: 058
     Dates: start: 20130715

REACTIONS (3)
  - Infection [Recovered/Resolved]
  - Staphylococcal infection [Recovered/Resolved]
  - Animal bite [Recovered/Resolved]
